FAERS Safety Report 8624596-9 (Version None)
Quarter: 2012Q3

REPORT INFORMATION
  Report Type: 
  Country: None (occurrence: None)
  Receive Date: 20120827
  Receipt Date: 20120813
  Transmission Date: 20120928
  Serious: Yes (Other)
  Sender: FDA-Public Use
  Company Number: FR-GLAXOSMITHKLINE-B0822662A

PATIENT
  Sex: Male

DRUGS (6)
  1. NIQUITIN 2MG [Suspect]
     Indication: EX-TOBACCO USER
     Dosage: 30LOZ PER DAY
     Route: 048
     Dates: start: 20090801
  2. SYMBICORT [Concomitant]
     Dosage: 1BRTH TWICE PER DAY
     Route: 055
     Dates: start: 20090801
  3. LEVOTHYROXINE SODIUM [Concomitant]
     Indication: THYROIDECTOMY
     Dates: start: 20110701
  4. SPIRIVA [Concomitant]
     Dosage: 1UNIT PER DAY
     Dates: start: 20090801
  5. BEROCCA C [Concomitant]
     Dates: start: 20110101
  6. CALCIUM [Concomitant]
     Dosage: 1G PER DAY
     Dates: start: 20110101

REACTIONS (5)
  - TOOTH EROSION [None]
  - SALIVARY HYPERSECRETION [None]
  - DENTAL CARIES [None]
  - DRUG ABUSE [None]
  - OVERDOSE [None]
